FAERS Safety Report 4542850-7 (Version None)
Quarter: 2004Q4

REPORT INFORMATION
  Report Type: 
  Country: None (occurrence: None)
  Receive Date: 20041229
  Receipt Date: 20041213
  Transmission Date: 20050328
  Serious: Yes (Hospitalization)
  Sender: FDA-Public Use
  Company Number: 206152

PATIENT
  Age: 45 Year
  Sex: Female
  Weight: 135.1719 kg

DRUGS (12)
  1. AVONEX [Suspect]
     Indication: MULTIPLE SCLEROSIS
     Dosage: 30 UG; QW; IM
     Route: 030
  2. TENORMIN [Concomitant]
  3. PAMELOR [Concomitant]
  4. OXYCONTIN [Concomitant]
  5. PERCOCET [Concomitant]
  6. CARDIZEM [Concomitant]
  7. ZESTRIL [Concomitant]
  8. LASIX [Concomitant]
  9. POTASSIUM [Concomitant]
  10. ULTRAM [Concomitant]
  11. ORAMORPH SR [Concomitant]
  12. SOMA [Concomitant]

REACTIONS (7)
  - ARTHRALGIA [None]
  - CEREBRAL INFARCTION [None]
  - CEREBROVASCULAR ACCIDENT [None]
  - EMBOLISM [None]
  - HYPERTENSION [None]
  - INTRACARDIAC THROMBUS [None]
  - PAIN IN EXTREMITY [None]
